FAERS Safety Report 7067849-0 (Version None)
Quarter: 2010Q4

REPORT INFORMATION
  Report Type: 
  Country: None (occurrence: None)
  Receive Date: 20101028
  Receipt Date: 20101019
  Transmission Date: 20110411
  Serious: Yes (Other)
  Sender: FDA-Public Use
  Company Number: BR-PFIZER INC-2010121052

PATIENT
  Sex: Female
  Weight: 87 kg

DRUGS (6)
  1. FRONTAL [Suspect]
     Indication: PANIC DISORDER
     Dosage: 3 TABLETS PER DAY
     Route: 048
  2. ALPRAZOLAM [Suspect]
     Dosage: UNK
  3. MODURETIC 5-50 [Concomitant]
     Dosage: UNK
  4. SIMVASTATIN [Concomitant]
     Indication: BLOOD CHOLESTEROL INCREASED
     Dosage: UNK
  5. ATENOLOL [Concomitant]
     Indication: HYPERTENSION
     Dosage: UNK
  6. EXODUS [Concomitant]
     Dosage: UNK

REACTIONS (15)
  - ABDOMINAL DISCOMFORT [None]
  - ANTISOCIAL BEHAVIOUR [None]
  - ANXIETY [None]
  - CONFUSIONAL STATE [None]
  - CRYING [None]
  - DEPRESSED MOOD [None]
  - DRUG INEFFECTIVE [None]
  - EYE SWELLING [None]
  - FEAR [None]
  - LISTLESS [None]
  - OEDEMA MOUTH [None]
  - PALPITATIONS [None]
  - PANIC REACTION [None]
  - PARAESTHESIA ORAL [None]
  - WEIGHT INCREASED [None]
